FAERS Safety Report 7430928-X (Version None)
Quarter: 2011Q2

REPORT INFORMATION
  Report Type: 
  Country: None (occurrence: None)
  Receive Date: 20110421
  Receipt Date: 20110418
  Transmission Date: 20111010
  Serious: Yes (Other)
  Sender: FDA-Public Use
  Company Number: DE-PFIZER INC-2011073748

PATIENT
  Age: 90 Year
  Sex: Female

DRUGS (1)
  1. ZYVOX [Suspect]
     Indication: DIPHTHERIA
     Dosage: 600 MG, 2X/DAY
     Route: 042
     Dates: start: 20101008, end: 20101015

REACTIONS (1)
  - JARISCH-HERXHEIMER REACTION [None]
